FAERS Safety Report 9275404 (Version 2)
Quarter: 2013Q2

REPORT INFORMATION
  Report Type: Spontaneous
  Country: JP (occurrence: None)
  Receive Date: 20130430
  Receipt Date: 20130506
  Transmission Date: 20140414
  Serious: Yes (Hospitalization)
  Sender: FDA-Public Use
  Company Number: TCI2013A02251

PATIENT
  Age: 61 Year
  Sex: Male

DRUGS (3)
  1. NESINA [Suspect]
     Indication: TYPE 2 DIABETES MELLITUS
     Dosage: 25 MG (25 MG, 1 IN 1 D)
     Route: 048
     Dates: start: 20110831, end: 20130325
  2. AMARYL(GLIMEPIRIDE) [Concomitant]
  3. OLMETEC(OLMESARTAN MEDOXOMIL) [Concomitant]

REACTIONS (3)
  - Pancreatitis acute [None]
  - Cholecystitis [None]
  - Cholangitis [None]
